FAERS Safety Report 4953437-6 (Version None)
Quarter: 2006Q1

REPORT INFORMATION
  Report Type: 
  Country: None (occurrence: None)
  Receive Date: 20060324
  Receipt Date: 20060202
  Transmission Date: 20060701
  Serious: Yes (Hospitalization, Other)
  Sender: FDA-Public Use
  Company Number: US-ABBOTT-06P-163-0323936-00

PATIENT
  Sex: Female
  Weight: 65.83 kg

DRUGS (4)
  1. HUMIRA [Suspect]
     Indication: RHEUMATOID ARTHRITIS
     Route: 058
     Dates: start: 20030821, end: 20051101
  2. HUMIRA [Suspect]
     Route: 058
     Dates: start: 20060202
  3. MORPHINE [Concomitant]
     Indication: PAIN
     Dosage: CONTINUOUS PAIN PUMP
     Route: 042
  4. CLONIDINE [Concomitant]
     Indication: PAIN
     Route: 042

REACTIONS (1)
  - FAECALOMA [None]
